FAERS Safety Report 5333684-4 (Version None)
Quarter: 2007Q2

REPORT INFORMATION
  Report Type: 
  Country: None (occurrence: None)
  Receive Date: 20070524
  Receipt Date: 20070523
  Transmission Date: 20071010
  Serious: Yes (Hospitalization)
  Sender: FDA-Public Use
  Company Number: A0652690A

PATIENT
  Age: 87 Year
  Sex: Female

DRUGS (5)
  1. AVANDARYL [Suspect]
     Dosage: 1TAB TWICE PER DAY
     Route: 048
     Dates: start: 20060523, end: 20070522
  2. DIURETIC [Concomitant]
  3. VITAMINS [Concomitant]
  4. IRON SUPPLEMENT [Concomitant]
  5. METOPROLOL SUCCINATE [Concomitant]

REACTIONS (4)
  - HYPERTENSION [None]
  - MYOCARDIAL INFARCTION [None]
  - PULSE PRESSURE DECREASED [None]
  - SWELLING [None]
